FAERS Safety Report 8645989 (Version 3)
Quarter: 2013Q4

REPORT INFORMATION
  Report Type: Spontaneous
  Country: BR (occurrence: BR)
  Receive Date: 20120702
  Receipt Date: 20131031
  Transmission Date: 20140711
  Serious: Yes (Hospitalization, Other)
  Sender: FDA-Public Use
  Company Number: BR-MSD-1206BRA00073

PATIENT
  Age: 61 Year
  Sex: Female
  Weight: 65 kg

DRUGS (20)
  1. ZETIA [Suspect]
     Dosage: 40 MG, QD
     Route: 048
  2. MK-0954 [Suspect]
     Dosage: UNK UNK, QD
     Route: 048
  3. PANTOPRAZOLE [Concomitant]
     Dosage: 40 MG, UNK
     Route: 048
  4. HYDROCHLOROTHIAZIDE (+) LOSARTAN POTASSIUM [Concomitant]
     Dosage: 40 MG, UNK
     Route: 048
  5. ATENSINA [Concomitant]
     Dosage: 40 MG, UNK
     Route: 048
  6. PROPRANOLOL HYDROCHLORIDE [Concomitant]
     Dosage: 80 MG, UNK
     Route: 048
  7. PROPRANOLOL HYDROCHLORIDE [Concomitant]
     Dosage: 20 MG, Q12H
     Route: 048
  8. LANTUS [Concomitant]
     Dosage: 14 IU, UNK
  9. APIDRA [Concomitant]
     Dosage: UNK IU, UNK
  10. SAXAGLIPTIN [Concomitant]
     Dosage: 5 MG, UNK
  11. MK-9378 [Concomitant]
     Dosage: UNK UNK, TID
  12. INSULIN HUMAN [Concomitant]
  13. INTERFERON (UNSPECIFIED) [Concomitant]
     Indication: CHRONIC HEPATITIS C
     Dates: start: 2005, end: 2006
  14. RIBAVIRIN [Concomitant]
     Indication: CHRONIC HEPATITIS C
     Dosage: UNK UNK, QID
     Dates: start: 2005, end: 2006
  15. RIBAVIRIN [Concomitant]
     Dosage: UNK UNK, QID
     Dates: start: 2008, end: 2008
  16. RIBAVIRIN [Concomitant]
     Dosage: 1500 MG, QD
     Dates: start: 20120202
  17. PEGINTRON [Concomitant]
     Indication: CHRONIC HEPATITIS C
     Dates: start: 2008, end: 2008
  18. PEGINTRON [Concomitant]
     Dates: start: 20120405
  19. PEGINTERFERON ALFA-2A [Concomitant]
     Indication: CHRONIC HEPATITIS C
     Dosage: 180 ?G, QW
     Dates: start: 20120209, end: 20120405
  20. BOCEPREVIR [Concomitant]
     Indication: CHRONIC HEPATITIS
     Dates: start: 20120308, end: 20120614

REACTIONS (14)
  - Febrile neutropenia [Recovering/Resolving]
  - Fungaemia [Unknown]
  - Haemoglobin decreased [Unknown]
  - Platelet count decreased [Not Recovered/Not Resolved]
  - Alpha 1 foetoprotein increased [Recovered/Resolved]
  - Aspartate aminotransferase increased [Not Recovered/Not Resolved]
  - Blood urea increased [Unknown]
  - Blood bilirubin increased [Unknown]
  - Bilirubin conjugated increased [Unknown]
  - Blood bilirubin unconjugated increased [Unknown]
  - Haematocrit decreased [Unknown]
  - Asthenia [Unknown]
  - Asthenia [Unknown]
  - Alanine aminotransferase increased [Recovered/Resolved]
